FAERS Safety Report 11693100 (Version 2)
Quarter: 2015Q4

REPORT INFORMATION
  Report Type: Spontaneous
  Country: CH (occurrence: BR)
  Receive Date: 20151103
  Receipt Date: 20151110
  Transmission Date: 20160304
  Serious: Yes (Hospitalization)
  Sender: FDA-Public Use
  Company Number: CH-LPDUSPRD-20150842

PATIENT
  Sex: Female

DRUGS (2)
  1. VENOFER [Suspect]
     Active Substance: IRON SUCROSE
     Dosage: 1 AMPOULE EACH ADMINISTRATION
     Route: 041
  2. FLEBOCORTID [Concomitant]
     Active Substance: HYDROCORTISONE SODIUM SUCCINATE
     Dosage: 500MG AND 100MG EVERY 6HRS
     Route: 042

REACTIONS (15)
  - Ileus paralytic [Recovered/Resolved]
  - Renal colic [Recovered/Resolved]
  - Uterine inflammation [Recovered/Resolved]
  - Vein disorder [Recovered/Resolved]
  - Urinary retention [Recovered/Resolved]
  - Joint swelling [Recovered/Resolved]
  - Swelling [Recovered/Resolved]
  - Laryngeal oedema [Recovered/Resolved]
  - Rash [Recovered/Resolved]
  - Noninfective oophoritis [Recovered/Resolved]
  - Renal failure [Recovered/Resolved]
  - Weight increased [Recovered/Resolved]
  - Vaginal inflammation [Recovered/Resolved]
  - Gait disturbance [Recovered/Resolved]
  - Phlebitis [Recovered/Resolved]
